FAERS Safety Report 25074470 (Version 2)
Quarter: 2025Q1

REPORT INFORMATION
  Report Type: Spontaneous
  Country: RO (occurrence: None)
  Receive Date: 20250313
  Receipt Date: 20250324
  Transmission Date: 20250409
  Serious: Yes (Other)
  Sender: INCYTE
  Company Number: RO-INCYTE CORPORATION-2025IN002580

PATIENT
  Age: 65 Year
  Weight: 65 kg

DRUGS (2)
  1. PEMAZYRE [Suspect]
     Active Substance: PEMIGATINIB
     Indication: Cholangiocarcinoma
     Dosage: 13.5 MILLIGRAM, QD (14 DAYS/7 DAYS PAUSE IN A 21-DAY PROTOCOL)
  2. SPIRONOLACTONE [Concomitant]
     Active Substance: SPIRONOLACTONE
     Indication: Macular oedema

REACTIONS (2)
  - Central serous chorioretinopathy [Recovering/Resolving]
  - Bone marrow failure [Unknown]
